FAERS Safety Report 7612027-7 (Version None)
Quarter: 2011Q3

REPORT INFORMATION
  Report Type: 
  Country: None (occurrence: None)
  Receive Date: 20110715
  Receipt Date: 20110707
  Transmission Date: 20111222
  Serious: Yes (Other)
  Sender: FDA-Public Use
  Company Number: US-SANOFI-AVENTIS-2011SA043897

PATIENT
  Age: 70 Year
  Sex: Female

DRUGS (3)
  1. CORTICOSTEROID NOS [Concomitant]
  2. OPTICLICK [Suspect]
  3. LANTUS [Suspect]
     Dosage: PRODUCT START DATE 6-7 YEARS DOSE:40 UNIT(S)
     Route: 058

REACTIONS (8)
  - BLOOD GLUCOSE INCREASED [None]
  - CHRONIC OBSTRUCTIVE PULMONARY DISEASE [None]
  - PRODUCT QUALITY ISSUE [None]
  - FOOT FRACTURE [None]
  - RETINAL DETACHMENT [None]
  - FALL [None]
  - DIZZINESS [None]
  - DRUG DOSE OMISSION [None]
